FAERS Safety Report 10297583 (Version 1)
Quarter: 2014Q3

REPORT INFORMATION
  Report Type: Report from Study
  Country: US (occurrence: US)
  Receive Date: 20140711
  Receipt Date: 20140711
  Transmission Date: 20150326
  Serious: Yes (Hospitalization, Other)
  Sender: FDA-Public Use
  Company Number: PHEH2014US013492

PATIENT
  Sex: Male

DRUGS (1)
  1. CLOZARIL [Suspect]
     Active Substance: CLOZAPINE
     Dosage: UNK

REACTIONS (5)
  - Delusional disorder, persecutory type [Unknown]
  - Abnormal behaviour [Unknown]
  - Atrial fibrillation [Unknown]
  - Delirium [Recovering/Resolving]
  - Hyponatraemia [Recovering/Resolving]
